FAERS Safety Report 7947314-6 (Version None)
Quarter: 2011Q4

REPORT INFORMATION
  Report Type: 
  Country: None (occurrence: None)
  Receive Date: 20111130
  Receipt Date: 20111118
  Transmission Date: 20120403
  Serious: Yes (Hospitalization)
  Sender: FDA-Public Use
  Company Number: US-BIOGENIDEC-2011BI042292

PATIENT
  Age: 35 Year
  Sex: Female

DRUGS (2)
  1. TYSABRI [Suspect]
     Indication: MULTIPLE SCLEROSIS
     Route: 042
     Dates: start: 20100416, end: 20110926
  2. TYSABRI [Suspect]
     Route: 042
     Dates: start: 20061211, end: 20090206

REACTIONS (5)
  - LEUKOCYTOSIS [None]
  - HYPOTHYROIDISM [None]
  - KLEBSIELLA INFECTION [None]
  - VITAMIN B12 DEFICIENCY [None]
  - BENIGN INTRACRANIAL HYPERTENSION [None]
